FAERS Safety Report 9639365 (Version 2)
Quarter: 2013Q4

REPORT INFORMATION
  Report Type: Spontaneous
  Country: ES (occurrence: ES)
  Receive Date: 20131022
  Receipt Date: 20131030
  Transmission Date: 20140711
  Serious: Yes (Hospitalization)
  Sender: FDA-Public Use
  Company Number: PHHY2013ES116000

PATIENT
  Age: 79 Year
  Sex: Female

DRUGS (1)
  1. LEVOFLOXACIN [Suspect]
     Indication: RESPIRATORY TRACT INFECTION

REACTIONS (3)
  - Fall [Unknown]
  - Femoral neck fracture [Recovered/Resolved]
  - Tendon rupture [Not Recovered/Not Resolved]
